FAERS Safety Report 16414049 (Version 6)
Quarter: 2019Q4

REPORT INFORMATION
  Report Type: Spontaneous
  Country: NL (occurrence: NL)
  Receive Date: 20190611
  Receipt Date: 20191104
  Transmission Date: 20200122
  Serious: Yes (Hospitalization)
  Sender: FDA-Public Use
  Company Number: NL-AMGEN-NLDSP2019092349

PATIENT
  Age: 70 Year
  Sex: Female
  Weight: 60 kg

DRUGS (15)
  1. DURATEARS [DEXTRAN 70;HYPROMELLOSE] [Concomitant]
     Dosage: 1 DF, 3X/DAY
  2. CALCI CHEW [Concomitant]
     Indication: MINERAL SUPPLEMENTATION
     Dosage: UNK
  3. CALCI CHEW [Concomitant]
     Indication: MINERAL SUPPLEMENTATION
     Dosage: UNK
  4. DENOSUMAB [Concomitant]
     Active Substance: DENOSUMAB
     Dosage: EVERY 6 MONTHS
     Route: 065
  5. DURATEARS [DEXTRAN 70;HYPROMELLOSE] [Concomitant]
     Indication: DRY EYE
     Dosage: 1 DF, 3X/DAY
  6. FOLIC ACID. [Concomitant]
     Active Substance: FOLIC ACID
     Indication: RHEUMATIC DISORDER
     Dosage: 1X/ WEEK
  7. VIDISIC [Concomitant]
     Dosage: 1 DF, 3X/DAY
  8. ENBREL [Suspect]
     Active Substance: ETANERCEPT
     Indication: RHEUMATOID ARTHRITIS
     Dosage: 50 MG, 1X/WEEK
     Route: 058
     Dates: start: 2014
  9. ENBREL [Suspect]
     Active Substance: ETANERCEPT
     Dosage: 1X/ TWO WEEKS
     Route: 058
     Dates: start: 201812, end: 20190525
  10. LOSEC [Concomitant]
     Active Substance: OMEPRAZOLE
     Indication: GASTRIC DISORDER
     Dosage: 20 MG, 1X/DAY
     Dates: start: 1990
  11. METHOTREXATE. [Concomitant]
     Active Substance: METHOTREXATE
     Dosage: 5 MG, 1X/WEEK
  12. VIDISIC [Concomitant]
     Indication: DRY EYE
     Dosage: 1 DF, 3X/DAY
  13. DENOSUMAB [Concomitant]
     Active Substance: DENOSUMAB
     Indication: PRODUCT USED FOR UNKNOWN INDICATION
     Dosage: EVERY 6 MONTHS
     Route: 065
  14. METHOTREXATE. [Concomitant]
     Active Substance: METHOTREXATE
     Indication: RHEUMATIC DISORDER
     Dosage: 5 MG, 1X/WEEK
  15. FOLIC ACID. [Concomitant]
     Active Substance: FOLIC ACID
     Dosage: 1X/ WEEK

REACTIONS (8)
  - Dyspnoea [Unknown]
  - Pyrexia [Unknown]
  - Bronchitis [Unknown]
  - Off label use [Unknown]
  - Respiratory disorder [Recovering/Resolving]
  - Cough [Recovering/Resolving]
  - Lung disorder [Unknown]
  - Pain in extremity [Unknown]

NARRATIVE: CASE EVENT DATE: 2017
